FAERS Safety Report 18621853 (Version 2)
Quarter: 2020Q4

REPORT INFORMATION
  Report Type: Report from Study
  Country: CL (occurrence: CL)
  Receive Date: 20201216
  Receipt Date: 20201231
  Transmission Date: 20210114
  Serious: Yes (Hospitalization)
  Sender: FDA-Public Use
  Company Number: CL-EMD SERONO-9205041

PATIENT
  Age: 49 Year
  Sex: Female

DRUGS (9)
  1. SERTRALINE [Concomitant]
     Active Substance: SERTRALINE HYDROCHLORIDE
     Indication: PRODUCT USED FOR UNKNOWN INDICATION
  2. METFORMIN [Concomitant]
     Active Substance: METFORMIN HYDROCHLORIDE
     Indication: PRODUCT USED FOR UNKNOWN INDICATION
  3. REBIF [Suspect]
     Active Substance: INTERFERON BETA-1A
     Route: 058
     Dates: start: 20201130
  4. PREGABALIN. [Concomitant]
     Active Substance: PREGABALIN
     Indication: PRODUCT USED FOR UNKNOWN INDICATION
  5. CLONAZEPAM. [Concomitant]
     Active Substance: CLONAZEPAM
     Indication: PRODUCT USED FOR UNKNOWN INDICATION
  6. REBIF [Suspect]
     Active Substance: INTERFERON BETA-1A
     Indication: PRODUCT USED FOR UNKNOWN INDICATION
     Route: 058
     Dates: start: 20150909, end: 202011
  7. LACTULOSE. [Concomitant]
     Active Substance: LACTULOSE
     Indication: CONSTIPATION
  8. LOSARTAN. [Concomitant]
     Active Substance: LOSARTAN
     Indication: PRODUCT USED FOR UNKNOWN INDICATION
  9. MAGNESIUM CHLORIDE. [Concomitant]
     Active Substance: MAGNESIUM CHLORIDE
     Indication: CONSTIPATION

REACTIONS (12)
  - Feeling abnormal [Recovering/Resolving]
  - Abdominal distension [Recovering/Resolving]
  - Headache [Recovering/Resolving]
  - Drug administered in wrong device [Unknown]
  - Asthenia [Unknown]
  - Product availability issue [Unknown]
  - Sensory disturbance [Unknown]
  - Muscular weakness [Recovering/Resolving]
  - Product dose omission issue [Recovered/Resolved]
  - Disease recurrence [Recovering/Resolving]
  - Abdominal rigidity [Recovering/Resolving]
  - Accident at home [Unknown]

NARRATIVE: CASE EVENT DATE: 202011
